FAERS Safety Report 23809221 (Version 1)
Quarter: 2024Q2

REPORT INFORMATION
  Report Type: Spontaneous
  Country: US (occurrence: None)
  Receive Date: 20240501
  Receipt Date: 20240501
  Transmission Date: 20240716
  Serious: Yes (Hospitalization)
  Sender: FDA-Public Use
  Company Number: None

PATIENT
  Age: 78 Year
  Sex: Male
  Weight: 121 kg

DRUGS (1)
  1. PERFLUTREN [Suspect]
     Active Substance: PERFLUTREN
     Indication: Ultrasound Doppler
     Dates: start: 20221229, end: 20221229

REACTIONS (5)
  - Anaphylactic reaction [None]
  - Decorticate posture [None]
  - Cardio-respiratory arrest [None]
  - Nausea [None]
  - Contrast media allergy [None]

NARRATIVE: CASE EVENT DATE: 20221229
